FAERS Safety Report 8322699 (Version 3)
Quarter: 2013Q2

REPORT INFORMATION
  Report Type: Report from Study
  Country: US (occurrence: US)
  Receive Date: 20120105
  Receipt Date: 20130529
  Transmission Date: 20140414
  Serious: Yes (Other)
  Sender: FDA-Public Use
  Company Number: US-PFIZER INC-2011302234

PATIENT
  Age: 88 Year
  Sex: Female
  Weight: 56.69 kg

DRUGS (6)
  1. LIPITOR [Suspect]
     Indication: BLOOD CHOLESTEROL INCREASED
     Dosage: 20 MG, UNK
  2. LIPITOR [Suspect]
     Dosage: UNK
  3. LIPITOR [Suspect]
     Dosage: 20 MG, 1X/DAY
  4. CALCIUM [Concomitant]
     Dosage: 200 MG, UNK
  5. VITAMIN D [Concomitant]
     Dosage: 1000 IU, UNK
  6. GABAPENTIN [Concomitant]
     Dosage: UNK, 1X/DAY

REACTIONS (3)
  - Hypoacusis [Not Recovered/Not Resolved]
  - Visual acuity reduced [Not Recovered/Not Resolved]
  - Blood cholesterol increased [Unknown]
